FAERS Safety Report 8390822-7 (Version None)
Quarter: 2012Q2

REPORT INFORMATION
  Report Type: 
  Country: None (occurrence: None)
  Receive Date: 20120529
  Receipt Date: 20120523
  Transmission Date: 20120825
  Serious: Yes (Life-Threatening, Other)
  Sender: FDA-Public Use
  Company Number: JP-ASTELLAS-2012JP003304

PATIENT
  Sex: Female

DRUGS (12)
  1. VESICARE [Suspect]
     Indication: HYPERTONIC BLADDER
     Dosage: 5 MG, UID/QD
     Route: 048
     Dates: start: 20120208, end: 20120307
  2. MAGMITT [Concomitant]
     Indication: CONSTIPATION
     Dosage: 250 MG, TID
     Route: 048
     Dates: start: 20120208
  3. CYMBALTA [Concomitant]
     Indication: DEPRESSION
     Dosage: 20 MG, TID
     Route: 048
     Dates: start: 20110817
  4. CONIEL [Concomitant]
     Route: 048
  5. ROZEREM [Concomitant]
     Indication: INSOMNIA
     Dosage: 8 MG, UID/QD
     Route: 048
     Dates: start: 20110901
  6. EVISTA [Concomitant]
     Route: 048
  7. CRESTOR [Concomitant]
     Route: 048
  8. SERMION [Concomitant]
     Indication: CEREBRAL INFARCTION
     Dosage: 5 MG, TID
     Route: 048
     Dates: start: 20110901
  9. ARICEPT [Concomitant]
     Indication: DEMENTIA ALZHEIMER'S TYPE
     Dosage: 5 MG, UID/QD
     Route: 048
     Dates: start: 20111102
  10. CELEBREX [Concomitant]
     Route: 048
  11. FAMOTIDINE [Concomitant]
     Route: 048
  12. ASPIRIN [Concomitant]
     Indication: CEREBRAL INFARCTION
     Dosage: 100 MG, UID/QD
     Route: 048
     Dates: start: 20110824

REACTIONS (2)
  - DRUG ERUPTION [None]
  - NEUTROPHIL COUNT INCREASED [None]
